FAERS Safety Report 17662368 (Version 1)
Quarter: 2020Q2

REPORT INFORMATION
  Report Type: Spontaneous
  Country: US (occurrence: US)
  Receive Date: 20200413
  Receipt Date: 20200413
  Transmission Date: 20200713
  Serious: No
  Sender: FDA-Public Use
  Company Number: US-HORIZON-PEN-0208-2020

PATIENT
  Age: 61 Year
  Sex: Female

DRUGS (1)
  1. PENNSAID [Suspect]
     Active Substance: DICLOFENAC SODIUM
     Indication: PAIN IN EXTREMITY
     Dosage: ONCE DAILY
     Dates: start: 2020

REACTIONS (4)
  - Rash pruritic [Not Recovered/Not Resolved]
  - Expired product administered [Unknown]
  - Off label use [Unknown]
  - Blister [Not Recovered/Not Resolved]

NARRATIVE: CASE EVENT DATE: 2020
